FAERS Safety Report 8113909-2 (Version None)
Quarter: 2012Q1

REPORT INFORMATION
  Report Type: 
  Country: None (occurrence: None)
  Receive Date: 20120203
  Receipt Date: 20120124
  Transmission Date: 20120608
  Serious: Yes (Hospitalization)
  Sender: FDA-Public Use
  Company Number: SE-ROCHE-1025848

PATIENT
  Age: 71 Year
  Sex: Male

DRUGS (2)
  1. MABTHERA [Suspect]
     Route: 065
     Dates: start: 20110901, end: 20111026
  2. MABTHERA [Suspect]
     Indication: PRODUCT USED FOR UNKNOWN INDICATION
     Route: 065
     Dates: start: 20100602, end: 20110901

REACTIONS (4)
  - DYSPNOEA [None]
  - MENTAL DISORDER [None]
  - VOMITING [None]
  - URTICARIA [None]
